FAERS Safety Report 7075025-0 (Version None)
Quarter: 2010Q4

REPORT INFORMATION
  Report Type: 
  Country: None (occurrence: None)
  Receive Date: 20101029
  Receipt Date: 20100120
  Transmission Date: 20110411
  Serious: No
  Sender: FDA-Public Use
  Company Number: US-WYE-H12523009

PATIENT
  Age: 79 Year
  Sex: Female
  Weight: 49.03 kg

DRUGS (3)
  1. ADVIL PM [Suspect]
     Indication: INSOMNIA
     Dosage: 2 CAPLETS AS NEEDED
     Route: 048
     Dates: start: 20091101, end: 20091101
  2. ADVIL PM [Suspect]
     Dosage: 1 CAPLET
     Route: 048
     Dates: start: 20091101, end: 20091125
  3. MULTI-VITAMINS [Concomitant]

REACTIONS (1)
  - DRUG INEFFECTIVE [None]
